FAERS Safety Report 10216141 (Version 1)
Quarter: 2014Q2

REPORT INFORMATION
  Report Type: Spontaneous
  Country: US (occurrence: US)
  Receive Date: 20140604
  Receipt Date: 20140604
  Transmission Date: 20141212
  Serious: No
  Sender: FDA-Public Use
  Company Number: US-ENDO PHARMACEUTICALS INC.-SPLN20140038

PATIENT
  Age: 13 Year
  Sex: 0

DRUGS (1)
  1. SUPPRELIN LA [Suspect]
     Indication: PRODUCT USED FOR UNKNOWN INDICATION
     Route: 058
     Dates: start: 2010

REACTIONS (3)
  - Incorrect drug administration duration [Recovered/Resolved]
  - Device breakage [Not Recovered/Not Resolved]
  - Drug ineffective [Unknown]
